FAERS Safety Report 19980459 (Version 1)
Quarter: 2021Q4

REPORT INFORMATION
  Report Type: Report from Study
  Country: None (occurrence: US)
  Receive Date: 20211022
  Receipt Date: 20211022
  Transmission Date: 20220303
  Serious: Yes (Other)
  Sender: FDA-Public Use
  Company Number: US-ABBVIE-21K-163-4125371-00

PATIENT
  Age: 68 Year
  Sex: Male

DRUGS (1)
  1. CREON [Suspect]
     Active Substance: PANCRELIPASE AMYLASE\PANCRELIPASE LIPASE\PANCRELIPASE PROTEASE
     Indication: Product used for unknown indication
     Route: 048

REACTIONS (9)
  - Shoulder arthroplasty [Unknown]
  - Appendicectomy [Unknown]
  - Cholecystectomy [Unknown]
  - Nephrolithiasis [Unknown]
  - Ankle operation [Unknown]
  - Ankle arthroplasty [Unknown]
  - Knee arthroplasty [Unknown]
  - Hepatic cirrhosis [Unknown]
  - Diarrhoea [Unknown]

NARRATIVE: CASE EVENT DATE: 20191201
